FAERS Safety Report 7641337-2 (Version None)
Quarter: 2011Q3

REPORT INFORMATION
  Report Type: 
  Country: None (occurrence: None)
  Receive Date: 20110728
  Receipt Date: 20110726
  Transmission Date: 20111222
  Serious: Yes (Congenital Anomaly)
  Sender: FDA-Public Use
  Company Number: JP-PFIZER INC-2011170021

PATIENT

DRUGS (3)
  1. ZOLOFT [Suspect]
     Dosage: 25 MG/DAY
     Route: 064
  2. MEILAX [Suspect]
     Dosage: UNK
     Route: 064
  3. DEPAS [Suspect]
     Dosage: UNK
     Route: 064

REACTIONS (2)
  - CLEFT LIP AND PALATE [None]
  - MATERNAL EXPOSURE DURING PREGNANCY [None]
